FAERS Safety Report 6928394-3 (Version None)
Quarter: 2010Q3

REPORT INFORMATION
  Report Type: 
  Country: None (occurrence: None)
  Receive Date: 20100817
  Receipt Date: 20100811
  Transmission Date: 20110219
  Serious: Yes (Death, Life-Threatening, Hospitalization, Disabling, Other)
  Sender: FDA-Public Use
  Company Number: GB-CELGENEUS-167-21880-10080307

PATIENT
  Age: 78 Year
  Sex: Male

DRUGS (4)
  1. REVLIMID [Suspect]
     Route: 048
     Dates: start: 20100727
  2. REVLIMID [Suspect]
     Route: 048
     Dates: end: 20100809
  3. CYCLOPHOSPHAMIDE [Suspect]
     Route: 048
     Dates: start: 20100727, end: 20100809
  4. DEXMETHASONE [Suspect]
     Route: 048
     Dates: start: 20100727, end: 20100809

REACTIONS (5)
  - PNEUMONIA [None]
  - PNEUMOTHORAX [None]
  - PULMONARY EMBOLISM [None]
  - RESPIRATORY FAILURE [None]
  - UNRESPONSIVE TO STIMULI [None]
